FAERS Safety Report 5029605-4 (Version None)
Quarter: 2006Q2

REPORT INFORMATION
  Report Type: 
  Country: None (occurrence: None)
  Receive Date: 20060503
  Receipt Date: 20060315
  Transmission Date: 20061013
  Serious: No
  Sender: FDA-Public Use
  Company Number: FACT0600173

PATIENT
  Age: 23 Year
  Sex: Female

DRUGS (1)
  1. FACTIVE [Suspect]
     Indication: RESPIRATORY TRACT INFECTION BACTERIAL
     Dosage: 320MG ORAL
     Route: 048
     Dates: start: 20060313, end: 20060301

REACTIONS (1)
  - DRUG INEFFECTIVE [None]
